FAERS Safety Report 9455136 (Version 2)
Quarter: 2013Q3

REPORT INFORMATION
  Report Type: Report from Study
  Country: JP (occurrence: JP)
  Receive Date: 20130813
  Receipt Date: 20130913
  Transmission Date: 20140515
  Serious: Yes (Hospitalization, Other)
  Sender: FDA-Public Use
  Company Number: JP-ROCHE-1260195

PATIENT
  Sex: Female
  Weight: 39 kg

DRUGS (5)
  1. ALTEPLASE [Suspect]
     Indication: EMBOLIC STROKE
     Route: 042
     Dates: start: 20130420, end: 20130420
  2. RADICUT [Suspect]
     Indication: EMBOLIC STROKE
     Route: 041
     Dates: start: 20130420, end: 20130420
  3. RADICUT [Suspect]
     Route: 041
     Dates: start: 20130421, end: 20130429
  4. HEPARIN SODIUM [Concomitant]
     Route: 065
     Dates: start: 20130421, end: 20130511
  5. WARFARIN POTASSIUM [Concomitant]
     Dosage: FORM NOT SPECIFIED.
     Route: 048
     Dates: end: 20130425

REACTIONS (2)
  - Haemorrhagic cerebral infarction [Recovered/Resolved]
  - Pleural effusion [Recovering/Resolving]
